FAERS Safety Report 15784852 (Version 1)
Quarter: 2019Q1

REPORT INFORMATION
  Report Type: Spontaneous
  Country: US (occurrence: US)
  Receive Date: 20190103
  Receipt Date: 20190103
  Transmission Date: 20190417
  Serious: No
  Sender: FDA-Public Use
  Company Number: US-GLENMARK PHARMACEUTICALS-2018GMK038275

PATIENT

DRUGS (4)
  1. MUPIROCIN. [Suspect]
     Active Substance: MUPIROCIN
     Indication: LIMB INJURY
     Dosage: UNK, 2 TO 3 TIMES A DAY
     Route: 061
     Dates: start: 20181104
  2. MUPIROCIN. [Suspect]
     Active Substance: MUPIROCIN
     Indication: ANIMAL BITE
  3. CELEBREX [Concomitant]
     Active Substance: CELECOXIB
     Indication: ASTHENIA
     Dosage: 200 MG, UNK
     Route: 065
  4. ASPIRIN                            /00002701/ [Concomitant]
     Active Substance: ASPIRIN
     Indication: THROMBOSIS
     Dosage: 325 MG, UNK
     Route: 065

REACTIONS (2)
  - Drug ineffective for unapproved indication [Unknown]
  - Prescription drug used without a prescription [Unknown]

NARRATIVE: CASE EVENT DATE: 20181104
